FAERS Safety Report 11692082 (Version 1)
Quarter: 2015Q4

REPORT INFORMATION
  Report Type: Spontaneous
  Country: CN (occurrence: CN)
  Receive Date: 20151103
  Receipt Date: 20151103
  Transmission Date: 20160304
  Serious: Yes (Other)
  Sender: FDA-Public Use
  Company Number: CN-PFIZER INC-2015358388

PATIENT
  Age: 82 Year
  Sex: Male
  Weight: 66 kg

DRUGS (1)
  1. PHARMORUBICIN [Suspect]
     Active Substance: EPIRUBICIN
     Indication: HEPATIC CANCER
     Dosage: 20 MG, SINGLE (ONCE DAILY)
     Route: 041
     Dates: start: 20150320, end: 20150320

REACTIONS (1)
  - Bradycardia [Recovering/Resolving]

NARRATIVE: CASE EVENT DATE: 20150320
